FAERS Safety Report 25042334 (Version 1)
Quarter: 2025Q1

REPORT INFORMATION
  Report Type: Spontaneous
  Country: FR (occurrence: FR)
  Receive Date: 20250305
  Receipt Date: 20250305
  Transmission Date: 20250409
  Serious: Yes (Death, Hospitalization)
  Sender: PFIZER
  Company Number: None

PATIENT
  Age: 62 Year
  Sex: Male
  Weight: 86 kg

DRUGS (17)
  1. DAPTOMYCIN [Suspect]
     Active Substance: DAPTOMYCIN
     Indication: Streptococcal sepsis
     Dosage: 500 MG, DAILY
     Route: 042
     Dates: start: 20241231, end: 20250115
  2. PIPERACILLIN SODIUM\TAZOBACTAM SODIUM [Suspect]
     Active Substance: PIPERACILLIN SODIUM\TAZOBACTAM SODIUM
     Indication: Lung disorder
     Dosage: 16 G, DAILY
     Route: 042
     Dates: start: 20241224, end: 20250115
  3. PANTOPRAZOLE [Suspect]
     Active Substance: PANTOPRAZOLE
     Indication: Gastric ulcer
     Dosage: 1772 MG, DAILY
     Route: 042
     Dates: start: 20250105, end: 20250122
  4. AMBISOME [Suspect]
     Active Substance: AMPHOTERICIN B
     Indication: Lung disorder
     Dosage: 250 MG, DAILY
     Route: 042
     Dates: start: 20241224, end: 20250115
  5. FLEBOGAMMA DIF [Suspect]
     Active Substance: HUMAN IMMUNOGLOBULIN G
     Indication: Respiratory syncytial virus infection
     Route: 042
     Dates: start: 20250110, end: 20250110
  6. SPIRAMYCIN ADIPATE [Suspect]
     Active Substance: SPIRAMYCIN ADIPATE
     Indication: Lung disorder
     Dosage: 4500000 IU, DAILY
     Route: 042
     Dates: start: 20241227, end: 20250113
  7. POLARAMINE [Suspect]
     Active Substance: DEXCHLORPHENIRAMINE MALEATE
     Indication: Antiallergic therapy
     Dosage: 5 MG, DAILY
     Route: 042
     Dates: start: 20250106, end: 20250116
  8. ACYCLOVIR [Suspect]
     Active Substance: ACYCLOVIR
     Indication: Prophylaxis
     Route: 042
     Dates: start: 20250111, end: 20250111
  9. VALACYCLOVIR HYDROCHLORIDE [Suspect]
     Active Substance: VALACYCLOVIR HYDROCHLORIDE
     Indication: Prophylaxis
     Dosage: 1000 MG, DAILY
     Route: 048
     Dates: start: 20250112, end: 20250114
  10. INSULIN PORK\INSULIN PURIFIED PORK [Concomitant]
     Active Substance: INSULIN PORK\INSULIN PURIFIED PORK
     Dosage: 1484 IU, DAILY
     Route: 058
     Dates: start: 20250107, end: 20250122
  11. FILGRASTIM [Concomitant]
     Active Substance: FILGRASTIM
     Dosage: 1 DOSAGE FORM, QD
     Route: 042
     Dates: start: 20250110, end: 20250122
  12. MIDAZOLAM [Concomitant]
     Active Substance: MIDAZOLAM
     Dosage: 646 MILLIGRAM
     Route: 042
     Dates: start: 20250111, end: 20250117
  13. FENTANYL [Concomitant]
     Active Substance: FENTANYL
     Dosage: 19580 MICROGRAM
     Route: 042
     Dates: start: 20250111, end: 20250122
  14. NOREPINEPHRINE BITARTRATE [Concomitant]
     Active Substance: NOREPINEPHRINE BITARTRATE
     Dosage: 462.8 MILLIGRAM
     Route: 042
     Dates: start: 20250111, end: 20250122
  15. NIMBEX [Concomitant]
     Active Substance: CISATRACURIUM BESYLATE
     Dosage: 685 MG, DAILY
     Route: 042
     Dates: start: 20250111, end: 20250113
  16. ROCURONIUM BROMIDE [Concomitant]
     Active Substance: ROCURONIUM BROMIDE
     Route: 042
     Dates: start: 20250111, end: 20250111
  17. KETAMINE [Concomitant]
     Active Substance: KETAMINE
     Route: 042
     Dates: start: 20250111, end: 20250111

REACTIONS (2)
  - Septic shock [Fatal]
  - Acute kidney injury [Not Recovered/Not Resolved]

NARRATIVE: CASE EVENT DATE: 20250112
